FAERS Safety Report 5625501-X (Version None)
Quarter: 2008Q1

REPORT INFORMATION
  Report Type: 
  Country: None (occurrence: None)
  Receive Date: 20080211
  Receipt Date: 20080131
  Transmission Date: 20080703
  Serious: Yes (Other)
  Sender: FDA-Public Use
  Company Number: 2008AP000346

PATIENT
  Age: 48 Year
  Sex: Female

DRUGS (11)
  1. PAROXETINE HCL [Suspect]
     Indication: DEPRESSION
     Dosage: SEE IMAGE
     Route: 048
     Dates: start: 19990301
  2. PAROXETINE HCL [Suspect]
     Indication: DEPRESSION
     Dosage: SEE IMAGE
     Route: 048
     Dates: start: 20010125
  3. PAROXETINE HCL [Suspect]
     Indication: DEPRESSION
     Dosage: SEE IMAGE
     Route: 048
     Dates: start: 20010125
  4. PAROXETINE HCL [Suspect]
     Indication: DEPRESSION
     Dosage: SEE IMAGE
     Route: 048
     Dates: start: 20030606
  5. PAROXETINE HCL [Suspect]
     Indication: DEPRESSION
     Dosage: SEE IMAGE
     Route: 048
     Dates: start: 20050125
  6. PAROXETINE HCL [Suspect]
     Indication: DEPRESSION
     Dosage: SEE IMAGE
     Route: 048
     Dates: start: 20050506
  7. PAROXETINE HCL [Suspect]
     Indication: DEPRESSION
     Dosage: SEE IMAGE
     Route: 048
     Dates: start: 20050614
  8. PAROXETINE HCL [Suspect]
     Indication: DEPRESSION
     Dosage: SEE IMAGE
     Route: 048
     Dates: start: 20060504
  9. PAROXETINE HCL [Suspect]
     Indication: DEPRESSION
     Dosage: SEE IMAGE
     Route: 048
     Dates: start: 20060706
  10. DIAZEPAM [Concomitant]
  11. FLUOXETINE HCL [Concomitant]

REACTIONS (11)
  - ANKLE FRACTURE [None]
  - ANXIETY [None]
  - CONDITION AGGRAVATED [None]
  - DEATH OF RELATIVE [None]
  - DRUG WITHDRAWAL SYNDROME [None]
  - FALL [None]
  - ILL-DEFINED DISORDER [None]
  - NIGHTMARE [None]
  - PALPITATIONS [None]
  - TEARFULNESS [None]
  - TREATMENT NONCOMPLIANCE [None]
